FAERS Safety Report 19597835 (Version 1)
Quarter: 2021Q3

REPORT INFORMATION
  Report Type: Spontaneous
  Country: TR (occurrence: TR)
  Receive Date: 20210723
  Receipt Date: 20210723
  Transmission Date: 20211014
  Serious: Yes (Other)
  Sender: FDA-Public Use
  Company Number: TR-ACCORD-232111

PATIENT
  Age: 34 Year
  Sex: Male

DRUGS (2)
  1. ETOPOSIDE. [Suspect]
     Active Substance: ETOPOSIDE
     Indication: TESTICULAR GERM CELL TUMOUR MIXED
     Dosage: CUMULATIVE DOSE TO FIRST REACTION: 3 CYCLICAL
  2. BLEOMYCIN [Suspect]
     Active Substance: BLEOMYCIN SULFATE
     Indication: TESTICULAR GERM CELL TUMOUR MIXED
     Dosage: CUMULATIVE DOSE TO FIRST REACTION: 3 CYCLICAL

REACTIONS (1)
  - Sarcoidosis [Recovered/Resolved]
